FAERS Safety Report 12524820 (Version 2)
Quarter: 2016Q3

REPORT INFORMATION
  Report Type: Report from Study
  Country: AU (occurrence: AU)
  Receive Date: 20160704
  Receipt Date: 20160712
  Transmission Date: 20161109
  Serious: Yes (Other)
  Sender: FDA-Public Use
  Company Number: PHHY2013AU014611

PATIENT
  Age: 69 Year
  Sex: Female

DRUGS (2)
  1. SANDOSTATIN LAR DEPOT [Suspect]
     Active Substance: OCTREOTIDE ACETATE
     Dosage: 30 MG, UNK
     Route: 030
  2. SANDOSTATIN LAR DEPOT [Suspect]
     Active Substance: OCTREOTIDE ACETATE
     Indication: ACROMEGALY
     Dosage: 20 MG, UNK
     Route: 030

REACTIONS (14)
  - Muscle spasms [Unknown]
  - Musculoskeletal pain [Recovering/Resolving]
  - Faeces pale [Unknown]
  - Mesothelioma malignant [Not Recovered/Not Resolved]
  - Thrombosis [Unknown]
  - Eating disorder [Unknown]
  - Nausea [Unknown]
  - Arthralgia [Recovering/Resolving]
  - Malaise [Unknown]
  - Poor quality sleep [Unknown]
  - Diabetes mellitus inadequate control [Unknown]
  - Back pain [Recovering/Resolving]
  - Weight decreased [Unknown]
  - Blood glucose abnormal [Unknown]

NARRATIVE: CASE EVENT DATE: 201212
